FAERS Safety Report 25729789 (Version 2)
Quarter: 2025Q3

REPORT INFORMATION
  Report Type: Spontaneous
  Country: US (occurrence: US)
  Receive Date: 20250827
  Receipt Date: 20250916
  Transmission Date: 20251021
  Serious: No
  Sender: ELI LILLY AND COMPANY
  Company Number: US-ELI_LILLY_AND_COMPANY-US202508015656

PATIENT
  Sex: Male

DRUGS (1)
  1. DONANEMAB [Suspect]
     Active Substance: DONANEMAB
     Indication: Product used for unknown indication
     Route: 065

REACTIONS (4)
  - Hallucination [Unknown]
  - Paranoia [Unknown]
  - Memory impairment [Not Recovered/Not Resolved]
  - Delirium [Unknown]
